FAERS Safety Report 23758276 (Version 1)
Quarter: 2024Q2

REPORT INFORMATION
  Report Type: Spontaneous
  Country: US (occurrence: US)
  Receive Date: 20240418
  Receipt Date: 20240418
  Transmission Date: 20240715
  Serious: No
  Sender: FDA-Public Use
  Company Number: US-TEVA-VS-3178749

PATIENT

DRUGS (1)
  1. ALPRAZOLAM [Suspect]
     Active Substance: ALPRAZOLAM
     Indication: Product used for unknown indication
     Route: 065

REACTIONS (6)
  - Palpitations [Unknown]
  - Panic attack [Unknown]
  - Paraesthesia [Unknown]
  - Anxiety [Unknown]
  - Visual impairment [Unknown]
  - Drug ineffective [Unknown]
